FAERS Safety Report 10647330 (Version 3)
Quarter: 2015Q1

REPORT INFORMATION
  Report Type: Spontaneous
  Country: JP (occurrence: JP)
  Receive Date: 20141211
  Receipt Date: 20150127
  Transmission Date: 20150720
  Serious: Yes (Hospitalization, Other)
  Sender: FDA-Public Use
  Company Number: JP-SA-2014SA168845

PATIENT
  Age: 77 Year
  Sex: Male

DRUGS (4)
  1. PLAVIX [Suspect]
     Active Substance: CLOPIDOGREL BISULFATE
     Indication: AORTIC ANEURYSM
     Route: 048
  2. ASPIRIN. [Suspect]
     Active Substance: ASPIRIN
     Indication: AORTIC ANEURYSM
     Route: 048
  3. ASPIRIN. [Suspect]
     Active Substance: ASPIRIN
     Indication: CAROTID ARTERY STENOSIS
     Route: 048
  4. PLAVIX [Suspect]
     Active Substance: CLOPIDOGREL BISULFATE
     Indication: CAROTID ARTERY STENOSIS
     Route: 048

REACTIONS (9)
  - Oesophageal ulcer [Unknown]
  - Dyslalia [Unknown]
  - Gastrointestinal stenosis [Unknown]
  - Haematemesis [Unknown]
  - Eating disorder [Recovered/Resolved]
  - Anaemia [Unknown]
  - Hemiparesis [Unknown]
  - Cerebral infarction [Unknown]
  - Spontaneous haematoma [Recovered/Resolved]
